FAERS Safety Report 20615052 (Version 1)
Quarter: 2022Q1

REPORT INFORMATION
  Report Type: Report from Study
  Country: JP (occurrence: JP)
  Receive Date: 20220321
  Receipt Date: 20220321
  Transmission Date: 20220423
  Serious: Yes (Death, Hospitalization, Other)
  Sender: FDA-Public Use
  Company Number: JP-JNJFOC-20210666183

PATIENT
  Age: 77 Year
  Sex: Female

DRUGS (29)
  1. MACITENTAN [Suspect]
     Active Substance: MACITENTAN
     Indication: Pulmonary arterial hypertension
     Dosage: IN THE MORNING
     Route: 048
     Dates: start: 20170823, end: 20180115
  2. UPTRAVI [Suspect]
     Active Substance: SELEXIPAG
     Indication: Pulmonary arterial hypertension
     Route: 048
     Dates: start: 20170921, end: 20170925
  3. UPTRAVI [Suspect]
     Active Substance: SELEXIPAG
     Route: 048
     Dates: start: 20170926, end: 20171010
  4. UPTRAVI [Suspect]
     Active Substance: SELEXIPAG
     Route: 048
     Dates: start: 20171011, end: 20171102
  5. LOPERAMIDE HYDROCHLORIDE [Concomitant]
     Active Substance: LOPERAMIDE HYDROCHLORIDE
     Indication: Diarrhoea
     Route: 048
     Dates: start: 20171024, end: 20171107
  6. SPIRONOLACTONE [Concomitant]
     Active Substance: SPIRONOLACTONE
     Indication: Pulmonary arterial hypertension
     Route: 048
     Dates: end: 20180115
  7. ADCIRCA [Concomitant]
     Active Substance: TADALAFIL
     Indication: Pulmonary arterial hypertension
     Route: 048
     Dates: start: 20110323, end: 20171226
  8. AZOSEMIDE [Concomitant]
     Active Substance: AZOSEMIDE
     Indication: Pulmonary arterial hypertension
     Route: 048
     Dates: end: 20180111
  9. LASIX [Concomitant]
     Active Substance: FUROSEMIDE
     Indication: Pulmonary arterial hypertension
     Dosage: IN THE MORNING
     Route: 048
     Dates: end: 20180115
  10. LASIX [Concomitant]
     Active Substance: FUROSEMIDE
     Dosage: IN THE AFTERNOON
     Route: 048
     Dates: end: 20180111
  11. CRESTOR [Concomitant]
     Active Substance: ROSUVASTATIN CALCIUM
     Indication: Hyperlipidaemia
     Route: 048
     Dates: end: 20180115
  12. FORTEO [Concomitant]
     Active Substance: TERIPARATIDE
     Indication: Systemic scleroderma
     Route: 058
     Dates: end: 20171031
  13. AZATHIOPRINE [Concomitant]
     Active Substance: AZATHIOPRINE
     Indication: Systemic scleroderma
     Route: 048
     Dates: end: 20180115
  14. PREDNISOLONE [Concomitant]
     Active Substance: PREDNISOLONE
     Indication: Systemic scleroderma
     Route: 048
     Dates: end: 20171214
  15. EVOXAC [Concomitant]
     Active Substance: CEVIMELINE HYDROCHLORIDE
     Indication: Systemic scleroderma
     Route: 048
     Dates: end: 20180115
  16. ALFAROL [Concomitant]
     Active Substance: ALFACALCIDOL
     Indication: Systemic scleroderma
     Route: 048
     Dates: end: 20171218
  17. ALLELOCK [Concomitant]
     Active Substance: OLOPATADINE HYDROCHLORIDE
     Indication: Asteatosis
     Route: 048
     Dates: end: 20171121
  18. CINAL [Concomitant]
     Indication: Asteatosis
     Route: 048
     Dates: start: 20170913, end: 20171121
  19. CINAL [Concomitant]
     Route: 048
     Dates: start: 20170913, end: 20171121
  20. VENTAVIS [Concomitant]
     Active Substance: ILOPROST
     Indication: Pulmonary arterial hypertension
     Dosage: 10G,1ML
     Route: 055
     Dates: start: 20171102, end: 20180115
  21. ADEMPAS [Concomitant]
     Active Substance: RIOCIGUAT
     Indication: Pulmonary arterial hypertension
     Route: 048
     Dates: start: 20171227, end: 20180104
  22. ADEMPAS [Concomitant]
     Active Substance: RIOCIGUAT
     Route: 048
     Dates: start: 20180105, end: 20180115
  23. PREDONINE [Concomitant]
     Active Substance: PREDNISOLONE
     Indication: Pulmonary arterial hypertension
     Route: 048
     Dates: start: 20171215, end: 20180111
  24. PREDONINE [Concomitant]
     Active Substance: PREDNISOLONE
     Route: 048
     Dates: start: 20180112, end: 20180115
  25. TOLVAPTAN [Concomitant]
     Active Substance: TOLVAPTAN
     Indication: Right ventricular failure
     Route: 048
     Dates: start: 20171026, end: 20171030
  26. TOLVAPTAN [Concomitant]
     Active Substance: TOLVAPTAN
     Route: 048
     Dates: start: 20171031, end: 20171201
  27. TOLVAPTAN [Concomitant]
     Active Substance: TOLVAPTAN
     Route: 048
     Dates: start: 20171202, end: 20180115
  28. DOBUTAMINE [Concomitant]
     Active Substance: DOBUTAMINE HYDROCHLORIDE
     Indication: Product used for unknown indication
     Dosage: DOSE UNKNOWN
     Route: 065
     Dates: start: 20171202
  29. OXYGEN [Concomitant]
     Active Substance: OXYGEN
     Indication: Product used for unknown indication
     Dosage: DOSE UNKNOWN
     Route: 055

REACTIONS (6)
  - Pulmonary hypertension [Fatal]
  - Systemic scleroderma [Fatal]
  - Right ventricular failure [Fatal]
  - Pulmonary congestion [Unknown]
  - Cardiomegaly [Unknown]
  - Diarrhoea [Recovered/Resolved]

NARRATIVE: CASE EVENT DATE: 20170922
